FAERS Safety Report 8952332 (Version 2)
Quarter: 2013Q3

REPORT INFORMATION
  Report Type: Spontaneous
  Country: US (occurrence: US)
  Receive Date: 20121205
  Receipt Date: 20130913
  Transmission Date: 20140515
  Serious: Yes (Other)
  Sender: FDA-Public Use
  Company Number: US-BIOGENIDEC-2012BI056543

PATIENT
  Age: 52 Year
  Sex: Female

DRUGS (4)
  1. AVONEX [Suspect]
     Indication: MULTIPLE SCLEROSIS
     Route: 030
     Dates: start: 20011024
  2. AVONEX [Suspect]
     Indication: MULTIPLE SCLEROSIS
     Route: 030
     Dates: start: 20020124
  3. AVONEX [Suspect]
     Indication: MULTIPLE SCLEROSIS
     Route: 030
     Dates: end: 20060701
  4. AVONEX [Suspect]
     Indication: MULTIPLE SCLEROSIS
     Route: 030
     Dates: start: 20080515

REACTIONS (9)
  - Breast cancer [Recovered/Resolved]
  - Visual impairment [Recovered/Resolved]
  - Blindness unilateral [Not Recovered/Not Resolved]
  - Eye pain [Recovered/Resolved]
  - Constipation [Recovered/Resolved]
  - Depressed mood [Recovered/Resolved]
  - Injection site pain [Recovered/Resolved]
  - Rash generalised [Recovered/Resolved]
  - Fatigue [Recovered/Resolved]
